FAERS Safety Report 4359961-1 (Version None)
Quarter: 2004Q2

REPORT INFORMATION
  Report Type: 
  Country: None (occurrence: None)
  Receive Date: 20040513
  Receipt Date: 20040504
  Transmission Date: 20050107
  Serious: Yes (Hospitalization)
  Sender: FDA-Public Use
  Company Number: 2003-04-0618

PATIENT
  Age: 22 Year
  Sex: Female
  Weight: 57 kg

DRUGS (4)
  1. CELESTAMINE TAB [Suspect]
     Indication: INFLUENZA
     Dosage: 1 QD ORAL
     Route: 048
     Dates: start: 20030226, end: 20030227
  2. RHINUREFLEX (IBUPROFEN/PSEUDOEPHEDRINE) [Suspect]
     Dosage: 3 QD ORAL
     Route: 048
     Dates: start: 20030226, end: 20030227
  3. DOLIPRANE [Suspect]
     Dosage: ORAL
     Route: 048
     Dates: start: 20030222, end: 20030227
  4. GUETHURAL (GUAIETOLIN) [Suspect]
     Dosage: 3 QD ORAL
     Route: 048
     Dates: start: 20030226, end: 20030227

REACTIONS (4)
  - CUTANEOUS VASCULITIS [None]
  - HAEMATOCHEZIA [None]
  - HENOCH-SCHONLEIN PURPURA [None]
  - OEDEMA PERIPHERAL [None]
